FAERS Safety Report 24120622 (Version 1)
Quarter: 2024Q3

REPORT INFORMATION
  Report Type: Spontaneous
  Country: US (occurrence: US)
  Receive Date: 20240722
  Receipt Date: 20240722
  Transmission Date: 20241017
  Serious: No
  Sender: RECRO PHARMA
  Company Number: US-SOCIETAL CDMO GAINESVILLE, LLC-SOC-2024-000001

PATIENT

DRUGS (1)
  1. VERAPAMIL HYDROCHLORIDE [Suspect]
     Active Substance: VERAPAMIL HYDROCHLORIDE
     Indication: Product used for unknown indication
     Dosage: 360 MILLIGRAM, UNK
     Route: 065

REACTIONS (11)
  - Abdominal distension [Unknown]
  - Prostatic specific antigen increased [Unknown]
  - Drug interaction [Unknown]
  - Fatigue [Unknown]
  - Brain fog [Unknown]
  - Gastrointestinal disorder [Unknown]
  - Weight increased [Unknown]
  - Breast enlargement [Unknown]
  - Depression [Unknown]
  - Myalgia [Unknown]
  - Tinnitus [Unknown]
